FAERS Safety Report 9997740 (Version 2)
Quarter: 2014Q1

REPORT INFORMATION
  Report Type: Spontaneous
  Country: US (occurrence: US)
  Receive Date: 20140311
  Receipt Date: 20140324
  Transmission Date: 20141002
  Serious: No
  Sender: FDA-Public Use
  Company Number: US-PFIZER INC-2014066818

PATIENT
  Age: 70 Year
  Sex: Male
  Weight: 57.14 kg

DRUGS (7)
  1. INLYTA [Suspect]
     Indication: RENAL CANCER METASTATIC
     Dosage: 5 MG, 2X/DAY
     Route: 048
     Dates: start: 20130925, end: 20140310
  2. DECADRON [Concomitant]
     Dosage: 4 MG, DAILY (WITH BREAKFAST)
     Route: 048
  3. NORCO [Concomitant]
     Indication: PAIN
     Dosage: 5MG HYDROCODONE BITARTRATE, 325MG PARACETAMOL, AS NEEDED (EVERY SIX HOURS AS NEEDED)
     Route: 048
  4. SYNTHROID [Concomitant]
     Dosage: 25 UG, DAILY
     Route: 048
  5. LEVOTHROID [Concomitant]
     Dosage: 25 UG, DAILY
     Route: 048
  6. BACTROBAN [Concomitant]
     Dosage: UNK
     Route: 061
  7. PRILOSEC [Concomitant]
     Dosage: 40 MG, DAILY
     Route: 048

REACTIONS (4)
  - Disease progression [Unknown]
  - Renal cancer [Unknown]
  - Blood glucose increased [Unknown]
  - Blood pressure increased [Unknown]
